FAERS Safety Report 9394278 (Version 2)
Quarter: 2014Q1

REPORT INFORMATION
  Report Type: Spontaneous
  Country: US (occurrence: US)
  Receive Date: 20130711
  Receipt Date: 20140312
  Transmission Date: 20141002
  Serious: No
  Sender: FDA-Public Use
  Company Number: US-B.I. PHARMACEUTICALS,INC./RIDGEFIELD-2013-BI-19638BP

PATIENT
  Age: 57 Year
  Sex: Male

DRUGS (1)
  1. COMBIVENT [Suspect]
     Indication: PRODUCT USED FOR UNKNOWN INDICATION
     Dosage: STRENGTH: 20 MCG / 100 MCG; DAILY DOSE: 240MCG/1200MCG
     Route: 055
     Dates: start: 20130621

REACTIONS (2)
  - Prescribed overdose [Not Recovered/Not Resolved]
  - Product quality issue [Unknown]
